FAERS Safety Report 8860308 (Version 2)
Quarter: 2012Q4

REPORT INFORMATION
  Report Type: 
  Country: US (occurrence: US)
  Receive Date: 20121025
  Receipt Date: 20121127
  Transmission Date: 20130627
  Serious: No
  Sender: FDA-Public Use
  Company Number: US-PFIZER INC-2012262453

PATIENT
  Age: 67 Year
  Sex: Male
  Weight: 89.8 kg

DRUGS (4)
  1. VIAGRA [Suspect]
     Indication: ERECTILE DYSFUNCTION
     Dosage: 100 mg, as needed
     Route: 048
  2. ACCUPRIL [Suspect]
     Indication: BLOOD PRESSURE HIGH
     Dosage: 40 mg, daily
     Route: 048
     Dates: start: 2006
  3. METFORMIN [Concomitant]
     Indication: TYPE II DIABETES MELLITUS
     Dosage: 1000 mg, daily
  4. LIPITOR [Concomitant]
     Indication: HIGH CHOLESTEROL
     Dosage: 20 mg, daily

REACTIONS (1)
  - Blood testosterone decreased [Unknown]
